FAERS Safety Report 24623387 (Version 2)
Quarter: 2025Q3

REPORT INFORMATION
  Report Type: Spontaneous
  Country: EU (occurrence: EU)
  Receive Date: 20241115
  Receipt Date: 20250809
  Transmission Date: 20251021
  Serious: Yes (Death, Other)
  Sender: ALEXION PHARMACEUTICALS
  Company Number: EU-AstraZeneca-CH-00742295A

PATIENT
  Sex: Female

DRUGS (1)
  1. ONDEXXYA [Suspect]
     Active Substance: ANDEXANET ALFA
     Dates: start: 20241024, end: 20241026

REACTIONS (1)
  - Death [Fatal]

NARRATIVE: CASE EVENT DATE: 20241024
